FAERS Safety Report 14145306 (Version 2)
Quarter: 2018Q3

REPORT INFORMATION
  Report Type: Spontaneous
  Country: US (occurrence: US)
  Receive Date: 20171031
  Receipt Date: 20180709
  Transmission Date: 20181010
  Serious: Yes (Other)
  Sender: FDA-Public Use
  Company Number: US-LEXICON PHARMACEUTICALS, INC-17-1606-01082

PATIENT
  Age: 60 Year
  Sex: Male

DRUGS (19)
  1. BELLADONNA?OPIUM [Concomitant]
  2. SIMETHICONE (DIMETHICONE) [Concomitant]
     Active Substance: DIMETHICONE
  3. SANDOSTATIN [Concomitant]
     Active Substance: OCTREOTIDE ACETATE
  4. ROXICODONE [Concomitant]
     Active Substance: OXYCODONE HYDROCHLORIDE
  5. DIPHENOXYLATE?ATROPINE [Concomitant]
     Active Substance: ATROPINE\DIPHENOXYLATE
  6. METAMUCIL [Concomitant]
     Active Substance: PLANTAGO SEED
  7. TYLENOL [Concomitant]
     Active Substance: ACETAMINOPHEN
  8. CREON [Concomitant]
     Active Substance: PANCRELIPASE AMYLASE\PANCRELIPASE LIPASE\PANCRELIPASE PROTEASE
  9. K?PHOS [Concomitant]
     Active Substance: POTASSIUM PHOSPHATE, MONOBASIC
  10. MULTIVITAMIN [Concomitant]
     Active Substance: VITAMINS
  11. MELATONIN [Concomitant]
     Active Substance: MELATONIN
  12. OMEGA3 [Concomitant]
  13. TELOTRISTAT ETHYL [Suspect]
     Active Substance: TELOTRISTAT ETHYL
     Indication: CARCINOID TUMOUR
     Route: 048
     Dates: start: 20170721
  14. QUESTRAN [Concomitant]
     Active Substance: CHOLESTYRAMINE
  15. MEGACE ORAL SUS [Concomitant]
  16. ZOFRAN [Concomitant]
     Active Substance: ONDANSETRON HYDROCHLORIDE
  17. XARELTO [Concomitant]
     Active Substance: RIVAROXABAN
  18. FIBER [Concomitant]
     Active Substance: PSYLLIUM HUSK
  19. LOPERAMIDE [Concomitant]
     Active Substance: LOPERAMIDE

REACTIONS (1)
  - Metastases to lymph nodes [Not Recovered/Not Resolved]

NARRATIVE: CASE EVENT DATE: 201708
